FAERS Safety Report 6269725-X (Version None)
Quarter: 2009Q3

REPORT INFORMATION
  Report Type: 
  Country: None (occurrence: None)
  Receive Date: 20090716
  Receipt Date: 20090709
  Transmission Date: 20100115
  Serious: Yes (Other)
  Sender: FDA-Public Use
  Company Number: DE-B.I. PHARMACEUTICALS,INC./RIDGEFIELD-2009-DE-04847DE

PATIENT
  Age: 87 Year
  Sex: Female

DRUGS (2)
  1. AGGRENOX [Suspect]
     Indication: PROPHYLAXIS
     Dosage: 25 MG DIPYRIDAMOLE + 200 MG ACETYL SALICYLIC ACID
  2. ANTIDEMENTIA [Concomitant]

REACTIONS (1)
  - CIRCULATORY COLLAPSE [None]
